FAERS Safety Report 9306033 (Version 2)
Quarter: 2013Q3

REPORT INFORMATION
  Report Type: Report from Study
  Country: BR (occurrence: BR)
  Receive Date: 20130523
  Receipt Date: 20130725
  Transmission Date: 20140515
  Serious: Yes (Other)
  Sender: FDA-Public Use
  Company Number: PHHY2013BR051675

PATIENT
  Sex: Female
  Weight: 72 kg

DRUGS (6)
  1. ACLASTA [Suspect]
     Indication: OSTEOPOROSIS
     Dosage: 5 MG, YEARLY
     Route: 042
  2. PURAN T4 [Concomitant]
     Indication: THYROID DISORDER
     Dosage: 1 DF (1 TABLET), A DAY
     Route: 048
  3. SIMVASTATIN [Concomitant]
     Indication: BLOOD CHOLESTEROL INCREASED
     Dosage: 1 DF (1 TABLET), AT NIGHT
     Route: 048
  4. RIVOTRIL [Concomitant]
     Indication: DEPRESSION
     Dosage: 15 DF, A DAY
     Route: 048
  5. OS-CAL D [Concomitant]
     Indication: OSTEOPOROSIS
     Dosage: 1 DF (1 TABLET), A DAY
     Route: 048
  6. PAROXETINE [Concomitant]
     Indication: DEPRESSION
     Dosage: 1 DF (1 TABLET), A DAY
     Route: 048

REACTIONS (2)
  - Spinal column injury [Recovered/Resolved]
  - Fall [Recovered/Resolved]
